FAERS Safety Report 16533605 (Version 1)
Quarter: 2019Q3

REPORT INFORMATION
  Report Type: Spontaneous
  Country: US (occurrence: US)
  Receive Date: 20190703
  Receipt Date: 20190703
  Transmission Date: 20191004
  Serious: Yes (Other)
  Sender: FDA-Public Use
  Company Number: None

PATIENT
  Age: 36 Year
  Sex: Female
  Weight: 150.59 kg

DRUGS (1)
  1. MIRENA [Suspect]
     Active Substance: LEVONORGESTREL
     Dates: start: 20130618

REACTIONS (5)
  - Embedded device [None]
  - Complication of device removal [None]
  - Device breakage [None]
  - Complication of device insertion [None]
  - Uterine leiomyoma [None]

NARRATIVE: CASE EVENT DATE: 20190520
